FAERS Safety Report 10610685 (Version 1)
Quarter: 2014Q4

REPORT INFORMATION
  Report Type: Spontaneous
  Country: US (occurrence: None)
  Receive Date: 20141124
  Receipt Date: 20141124
  Transmission Date: 20150529
  Serious: Yes (Other)
  Sender: FDA-Public Use
  Company Number: 2014VER00318

PATIENT
  Age: 15 Year
  Sex: Female
  Weight: 60.8 kg

DRUGS (2)
  1. MYORISAN [Suspect]
     Active Substance: ISOTRETINOIN
     Indication: ACNE CYSTIC
     Route: 048
     Dates: start: 201410, end: 20141110
  2. MYORISAN [Suspect]
     Active Substance: ISOTRETINOIN
     Indication: ACNE CYSTIC
     Route: 048
     Dates: start: 201409, end: 201410

REACTIONS (3)
  - Decreased interest [None]
  - Crying [None]
  - Depression [None]

NARRATIVE: CASE EVENT DATE: 201410
